FAERS Safety Report 16929808 (Version 1)
Quarter: 2019Q4

REPORT INFORMATION
  Report Type: Spontaneous
  Country: US (occurrence: US)
  Receive Date: 20191017
  Receipt Date: 20191017
  Transmission Date: 20200122
  Serious: Yes (Life-Threatening, Hospitalization, Other)
  Sender: FDA-Public Use
  Company Number: NVSC2019US003221

PATIENT
  Age: 33 Year
  Sex: Male

DRUGS (1)
  1. ALPRAZOLAM. [Suspect]
     Active Substance: ALPRAZOLAM
     Indication: PRODUCT USED FOR UNKNOWN INDICATION
     Dosage: UNK
     Route: 055

REACTIONS (8)
  - Drug abuse [Unknown]
  - Disorientation [Unknown]
  - Bronchiolitis [Unknown]
  - Hypercapnia [Unknown]
  - Respiratory acidosis [Unknown]
  - Bronchospasm [Unknown]
  - Unresponsive to stimuli [Unknown]
  - Counterfeit product administered [Unknown]
